FAERS Safety Report 7283802-6 (Version None)
Quarter: 2011Q1

REPORT INFORMATION
  Report Type: 
  Country: None (occurrence: None)
  Receive Date: 20110209
  Receipt Date: 20110131
  Transmission Date: 20110831
  Serious: Yes (Hospitalization)
  Sender: FDA-Public Use
  Company Number: BE-MERCK-1102BEL00003

PATIENT
  Sex: Female

DRUGS (1)
  1. EMEND [Suspect]
     Indication: PROPHYLAXIS OF NAUSEA AND VOMITING
     Route: 048
     Dates: start: 20110131, end: 20110131

REACTIONS (6)
  - HYPERSENSITIVITY [None]
  - NAUSEA [None]
  - RASH [None]
  - BLOOD PRESSURE DECREASED [None]
  - ERYTHEMA [None]
  - ABDOMINAL PAIN UPPER [None]
